FAERS Safety Report 20196998 (Version 1)
Quarter: 2021Q4

REPORT INFORMATION
  Report Type: Spontaneous
  Country: US (occurrence: US)
  Receive Date: 20211217
  Receipt Date: 20211217
  Transmission Date: 20220304
  Serious: Yes (Other)
  Sender: FDA-Public Use
  Company Number: US-SA-SAC20211213000720

PATIENT
  Age: 63 Year
  Sex: Female

DRUGS (1)
  1. ZANTAC [Suspect]
     Active Substance: RANITIDINE HYDROCHLORIDE
     Dosage: 300 MG, FREQUENCY: OTHER
     Dates: start: 198312, end: 202001

REACTIONS (1)
  - Ovarian cancer stage I [Recovering/Resolving]

NARRATIVE: CASE EVENT DATE: 20180901
